FAERS Safety Report 10206728 (Version 1)
Quarter: 2014Q2

REPORT INFORMATION
  Report Type: Spontaneous
  Country: US (occurrence: US)
  Receive Date: 20140530
  Receipt Date: 20140530
  Transmission Date: 20141212
  Serious: No
  Sender: FDA-Public Use
  Company Number: US-PFIZER INC-2014149122

PATIENT
  Age: 67 Year
  Sex: Male
  Weight: 81.63 kg

DRUGS (5)
  1. LYRICA [Suspect]
     Indication: PARAESTHESIA
     Dosage: 10 MG, 2X/DAY
     Dates: start: 201301, end: 20140523
  2. LYRICA [Suspect]
     Indication: BURNING SENSATION
  3. LYRICA [Suspect]
     Indication: PAIN IN EXTREMITY
  4. LYRICA [Suspect]
     Indication: DIABETIC NEUROPATHY
  5. CAPTOPRIL [Concomitant]
     Indication: HYPERTENSION
     Dosage: UNK

REACTIONS (2)
  - Pain [Unknown]
  - Insomnia [Unknown]
